FAERS Safety Report 11938069 (Version 2)
Quarter: 2016Q2

REPORT INFORMATION
  Report Type: Spontaneous
  Country: US (occurrence: US)
  Receive Date: 20160122
  Receipt Date: 20160406
  Transmission Date: 20160815
  Serious: No
  Sender: FDA-Public Use
  Company Number: US-ELI_LILLY_AND_COMPANY-US201512009156

PATIENT
  Age: 65 Year
  Sex: Female
  Weight: 61.22 kg

DRUGS (3)
  1. AMBRISENTAN [Suspect]
     Active Substance: AMBRISENTAN
     Indication: PULMONARY HYPERTENSION
     Dosage: 5 MG, UNKNOWN
     Route: 065
  2. ADCIRCA [Suspect]
     Active Substance: TADALAFIL
     Indication: PULMONARY HYPERTENSION
     Dosage: 40 MG, QD
     Route: 048
     Dates: start: 201511
  3. AMBRISENTAN [Suspect]
     Active Substance: AMBRISENTAN
     Dosage: 2.5 MG, QD
     Route: 065

REACTIONS (3)
  - Sinus congestion [Unknown]
  - Swelling [Recovered/Resolved]
  - Wrong technique in product usage process [Unknown]

NARRATIVE: CASE EVENT DATE: 201512
